FAERS Safety Report 25855731 (Version 1)
Quarter: 2025Q3

REPORT INFORMATION
  Report Type: Spontaneous
  Country: CN (occurrence: CN)
  Receive Date: 20250928
  Receipt Date: 20250928
  Transmission Date: 20251021
  Serious: Yes (Other)
  Sender: BEIGENE
  Company Number: CN-BEIGENE-BGN-2025-016254

PATIENT
  Age: 43 Year
  Weight: 58.5 kg

DRUGS (8)
  1. TISLELIZUMAB [Suspect]
     Active Substance: TISLELIZUMAB
     Indication: Nonkeratinising carcinoma of nasopharynx
     Dosage: 0.2 GRAM, D1, Q3WK
  2. TISLELIZUMAB [Suspect]
     Active Substance: TISLELIZUMAB
     Dosage: 0.2 GRAM, D1, Q3WK
     Route: 041
  3. TISLELIZUMAB [Suspect]
     Active Substance: TISLELIZUMAB
     Dosage: 0.2 GRAM, D1, Q3WK
     Route: 041
  4. TISLELIZUMAB [Suspect]
     Active Substance: TISLELIZUMAB
     Dosage: 0.2 GRAM, D1, Q3WK
  5. GEMCITABINE [Concomitant]
     Active Substance: GEMCITABINE
     Indication: Nonkeratinising carcinoma of nasopharynx
     Dosage: 1.7 GRAM, D1, 8, Q3WK
     Route: 041
  6. GEMCITABINE [Concomitant]
     Active Substance: GEMCITABINE
     Dosage: 1.7 GRAM, D1, 8, Q3WK
  7. CISPLATIN [Concomitant]
     Active Substance: CISPLATIN
     Indication: Nonkeratinising carcinoma of nasopharynx
     Dosage: 120 MILLIGRAM, D1, Q3WK
     Route: 041
  8. CISPLATIN [Concomitant]
     Active Substance: CISPLATIN
     Dosage: 120 MILLIGRAM, D1, Q3WK

REACTIONS (1)
  - Myelosuppression [Recovered/Resolved]
